FAERS Safety Report 23821083 (Version 1)
Quarter: 2024Q2

REPORT INFORMATION
  Report Type: Spontaneous
  Country: GB (occurrence: GB)
  Receive Date: 20240506
  Receipt Date: 20240506
  Transmission Date: 20240716
  Serious: Yes (Other)
  Sender: FDA-Public Use
  Company Number: None

PATIENT
  Age: 6 Year
  Sex: Male
  Weight: 16 kg

DRUGS (1)
  1. DESMOPRESSIN [Suspect]
     Active Substance: DESMOPRESSIN
     Dosage: USE AS DIRECTED BY THE PAEDIATRIC NURSE TEAM,SUGAR FREE
     Route: 065
     Dates: start: 20240126

REACTIONS (4)
  - Irritability [Recovered/Resolved]
  - Anger [Unknown]
  - Psychomotor hyperactivity [Unknown]
  - Agitation [Unknown]
